FAERS Safety Report 24265163 (Version 2)
Quarter: 2024Q3

REPORT INFORMATION
  Report Type: Spontaneous
  Country: US (occurrence: US)
  Receive Date: 20240829
  Receipt Date: 20240909
  Transmission Date: 20241016
  Serious: No
  Sender: PRASCO
  Company Number: US-Prasco Laboratories-PRAS20241122

PATIENT
  Sex: Female

DRUGS (1)
  1. ESTRADIOL [Suspect]
     Active Substance: ESTRADIOL
     Indication: Product used for unknown indication
     Dosage: UNKNOWN
     Route: 067

REACTIONS (1)
  - Vulvovaginal burning sensation [Recovering/Resolving]
